FAERS Safety Report 9367039 (Version 2)
Quarter: 2013Q3

REPORT INFORMATION
  Report Type: Spontaneous
  Country: GB (occurrence: GB)
  Receive Date: 20130625
  Receipt Date: 20130718
  Transmission Date: 20140515
  Serious: Yes (Other)
  Sender: FDA-Public Use
  Company Number: GB-ABBOTT-13P-167-1108921-00

PATIENT
  Age: 63 Year
  Sex: Female

DRUGS (6)
  1. HUMIRA [Suspect]
     Indication: PSORIATIC ARTHROPATHY
     Route: 058
     Dates: start: 20130312, end: 20130613
  2. CO-DYDRAMOL [Concomitant]
     Indication: PAIN
     Dosage: 10/500MG
     Route: 048
  3. ESOMEPRAZOLE [Concomitant]
     Indication: GASTROINTESTINAL DISORDER
     Route: 048
  4. ESOMEPRAZOLE [Concomitant]
     Indication: PROPHYLAXIS
  5. ADCAL D3 [Concomitant]
     Indication: BONE DISORDER
     Dosage: X1
     Route: 048
  6. ADCAL D3 [Concomitant]
     Indication: PROPHYLAXIS

REACTIONS (3)
  - Blister [Recovering/Resolving]
  - Injection site reaction [Recovering/Resolving]
  - Cellulitis [Recovering/Resolving]
